FAERS Safety Report 25849474 (Version 3)
Quarter: 2025Q4

REPORT INFORMATION
  Report Type: Report from Study
  Country: US (occurrence: US)
  Receive Date: 20250926
  Receipt Date: 20251127
  Transmission Date: 20260118
  Serious: Yes (Disabling, Other)
  Sender: ABBVIE
  Company Number: US-ABBVIE-6474466

PATIENT
  Age: 58 Year
  Sex: Female

DRUGS (3)
  1. RINVOQ [Suspect]
     Active Substance: UPADACITINIB
     Indication: Psoriatic arthropathy
     Dosage: (FOR 1 WEEK)?STRENGTH: 15 MG/EXTENDED RELEASE TABLET
     Route: 048
     Dates: start: 20250917, end: 202510
  2. RINVOQ [Suspect]
     Active Substance: UPADACITINIB
     Indication: Psoriatic arthropathy
     Dosage: STOP DATE: 2025 ?HOLD FOR 2 DAYS?STRENGTH: 15 MG/EXTENDED RELEASE TABLET
     Route: 048
     Dates: start: 2025
  3. Tremfya one press [Concomitant]
     Indication: Product used for unknown indication
     Dosage: TREMFYA SD ONE-PRESS AUTOINJ

REACTIONS (3)
  - Disability [Unknown]
  - Pneumonia aspiration [Not Recovered/Not Resolved]
  - COVID-19 [Recovered/Resolved]

NARRATIVE: CASE EVENT DATE: 20250101
